FAERS Safety Report 5171179-1 (Version None)
Quarter: 2006Q4

REPORT INFORMATION
  Report Type: 
  Country: None (occurrence: None)
  Receive Date: 20061207
  Receipt Date: 20061207
  Transmission Date: 20070319
  Serious: No
  Sender: FDA-Public Use
  Company Number: None

PATIENT
  Sex: Female
  Weight: 69.4003 kg

DRUGS (4)
  1. ATENOLOL [Suspect]
     Indication: CORONARY ARTERY DISEASE
     Dosage: 50 MG ONE QD
     Dates: start: 20050901
  2. ATENOLOL [Suspect]
     Indication: HYPERTENSION
     Dosage: 50 MG ONE QD
     Dates: start: 20050901
  3. METOPROLOL 50 [Suspect]
     Indication: CORONARY ARTERY DISEASE
     Dosage: 50 MG ONE QD
     Dates: start: 20060101
  4. METOPROLOL 50 [Suspect]
     Indication: HYPERTENSION
     Dosage: 50 MG ONE QD
     Dates: start: 20060101

REACTIONS (1)
  - RASH [None]
